FAERS Safety Report 23331829 (Version 1)
Quarter: 2023Q4

REPORT INFORMATION
  Report Type: Spontaneous
  Country: None (occurrence: FR)
  Receive Date: 20231222
  Receipt Date: 20231222
  Transmission Date: 20240110
  Serious: Yes (Other)
  Sender: FDA-Public Use
  Company Number: FR-B.Braun Medical Inc.-2149707

PATIENT
  Age: 71 Year
  Sex: Female

DRUGS (9)
  1. ACETAMINOPHEN [Suspect]
     Active Substance: ACETAMINOPHEN
     Indication: Pain
  2. ACUPAN [Suspect]
     Active Substance: NEFOPAM HYDROCHLORIDE
  3. ATORVASTATIN [Suspect]
     Active Substance: ATORVASTATIN
  4. ECONAZOLE. [Suspect]
     Active Substance: ECONAZOLE NITRATE
  5. GABAPENTIN [Suspect]
     Active Substance: GABAPENTIN
  6. KARDEGIC [Suspect]
     Active Substance: ASPIRIN DL-LYSINE
  7. AMITRIPTYLINE HYDROCHLORIDE [Suspect]
     Active Substance: AMITRIPTYLINE HYDROCHLORIDE
  8. LOVENOX [Suspect]
     Active Substance: ENOXAPARIN SODIUM
  9. IOBITRIDOL [Suspect]
     Active Substance: IOBITRIDOL

REACTIONS (1)
  - Purpura [None]
